FAERS Safety Report 5404413-0 (Version None)
Quarter: 2007Q3

REPORT INFORMATION
  Report Type: 
  Country: None (occurrence: None)
  Receive Date: 20070711
  Receipt Date: 20070122
  Transmission Date: 20080115
  Serious: Yes (Other)
  Sender: FDA-Public Use
  Company Number: 260258

PATIENT
  Age: 49 Year
  Sex: Female
  Weight: 117.9 kg

DRUGS (16)
  1. ACTIVELLA [Suspect]
     Indication: HORMONE THERAPY
     Dosage: 1 MG/0.5 TAB
     Dates: start: 20011201, end: 20020909
  2. PREMARIN [Suspect]
     Indication: HORMONE THERAPY
     Dosage: 0.625 MG,; 1.25; 0.9
     Dates: start: 19940920, end: 20020901
  3. PREMARIN [Suspect]
     Indication: HORMONE THERAPY
     Dosage: 0.625 MG,; 1.25; 0.9
     Dates: start: 19950101
  4. PREMARIN [Suspect]
     Indication: HORMONE THERAPY
     Dosage: 0.625 MG,; 1.25; 0.9
     Dates: start: 19950101
  5. MARIJUANA (CANNABIS SATIVA) [Concomitant]
  6. HYDROCHLOROTHIAZIDE [Concomitant]
  7. PROVERA [Suspect]
     Indication: HORMONE THERAPY
     Dosage: 10 MG; 5 MG; 2.5 MG
     Dates: start: 19950101, end: 19990101
  8. PROVERA [Suspect]
     Indication: HORMONE THERAPY
     Dosage: 10 MG; 5 MG; 2.5 MG
     Dates: end: 20010801
  9. PROVERA [Suspect]
     Indication: HORMONE THERAPY
     Dosage: 10 MG; 5 MG; 2.5 MG
     Dates: start: 19940920, end: 20011201
  10. MEDROXYPROGESTERONE [Suspect]
     Dosage: 5 MG
     Dates: start: 19940920, end: 20011201
  11. ESTRADIOL [Suspect]
     Indication: HORMONE THERAPY
     Dosage: 2 MG
     Dates: start: 19980129, end: 20020927
  12. PROVERA [Suspect]
     Indication: HORMONE THERAPY
     Dosage: 10 MG
     Dates: start: 19940920, end: 20011201
  13. IBUPROFEN [Concomitant]
  14. PAXIL [Concomitant]
  15. PROZAC [Concomitant]
  16. TRIAMCINOLON /00031901 [Concomitant]

REACTIONS (1)
  - BREAST CANCER [None]
